FAERS Safety Report 24887325 (Version 3)
Quarter: 2025Q1

REPORT INFORMATION
  Report Type: Report from Study
  Country: GB (occurrence: GB)
  Receive Date: 20250127
  Receipt Date: 20250220
  Transmission Date: 20250408
  Serious: Yes (Hospitalization, Other)
  Sender: ABBVIE
  Company Number: GB-ABBVIE-6100487

PATIENT
  Sex: Male

DRUGS (1)
  1. SKYRIZI [Suspect]
     Active Substance: RISANKIZUMAB-RZAA
     Indication: Crohn^s disease
     Dosage: DOSE 1.00 EA?360MG/2.4ML
     Route: 058
     Dates: start: 20241203

REACTIONS (5)
  - Intestinal obstruction [Unknown]
  - Intestinal operation [Unknown]
  - Gastrointestinal procedural complication [Unknown]
  - Postoperative adhesion [Unknown]
  - Obstruction [Unknown]
